FAERS Safety Report 19642827 (Version 1)
Quarter: 2021Q3

REPORT INFORMATION
  Report Type: Spontaneous
  Country: CN (occurrence: CN)
  Receive Date: 20210730
  Receipt Date: 20210730
  Transmission Date: 20211014
  Serious: Yes (Other)
  Sender: FDA-Public Use
  Company Number: CN-PFIZER INC-202100935589

PATIENT
  Age: 43 Year
  Sex: Female

DRUGS (3)
  1. LEVOFLOXACIN HYDROCHLORIDE [Suspect]
     Active Substance: LEVOFLOXACIN HYDROCHLORIDE
     Indication: ANTI-INFECTIVE THERAPY
     Dosage: 0.5 G, 1X/DAY
     Route: 041
     Dates: start: 20210628, end: 20210701
  2. METHOTREXATE. [Suspect]
     Active Substance: METHOTREXATE
     Indication: ABORTION
     Dosage: 85 MG, 1X/DAY
     Route: 030
     Dates: start: 20210627, end: 20210628
  3. MIFEPRISTONE [Suspect]
     Active Substance: MIFEPRISTONE
     Indication: ABORTION
     Dosage: 25 MG, 2X/DAY
     Route: 048
     Dates: start: 20210627, end: 20210628

REACTIONS (10)
  - Bronchitis [Recovering/Resolving]
  - Productive cough [Recovering/Resolving]
  - Nausea [Recovered/Resolved]
  - Cough [Recovering/Resolving]
  - Flatulence [Recovering/Resolving]
  - Sputum discoloured [Recovering/Resolving]
  - Discomfort [Recovered/Resolved]
  - Increased viscosity of bronchial secretion [Recovering/Resolving]
  - Vomiting [Recovered/Resolved]
  - Off label use [Unknown]

NARRATIVE: CASE EVENT DATE: 20210627
